FAERS Safety Report 13889603 (Version 1)
Quarter: 2017Q3

REPORT INFORMATION
  Report Type: Spontaneous
  Country: US (occurrence: US)
  Receive Date: 20170822
  Receipt Date: 20170822
  Transmission Date: 20171127
  Serious: No
  Sender: FDA-Public Use
  Company Number: US-ROCHE-1083886

PATIENT
  Age: 35 Year
  Sex: Female
  Weight: 45.85 kg

DRUGS (3)
  1. METHOTREXATE. [Concomitant]
     Active Substance: METHOTREXATE
  2. ACTEMRA [Suspect]
     Active Substance: TOCILIZUMAB
     Route: 065
  3. ACTEMRA [Suspect]
     Active Substance: TOCILIZUMAB
     Indication: RHEUMATOID ARTHRITIS
     Dosage: LAST DOSE PRIOR TO SAE:15  JUNE 2012
     Route: 042

REACTIONS (6)
  - Feeding disorder [Not Recovered/Not Resolved]
  - Amenorrhoea [Not Recovered/Not Resolved]
  - Blood oestrogen increased [Unknown]
  - Constipation [Unknown]
  - Abdominal distension [Not Recovered/Not Resolved]
  - Blood testosterone increased [Unknown]

NARRATIVE: CASE EVENT DATE: 20120215
